FAERS Safety Report 17165977 (Version 3)
Quarter: 2020Q1

REPORT INFORMATION
  Report Type: Spontaneous
  Country: US (occurrence: US)
  Receive Date: 20191217
  Receipt Date: 20200102
  Transmission Date: 20200409
  Serious: Yes (Other)
  Sender: FDA-Public Use
  Company Number: US-AMGEN INC.-USASP2019208348

PATIENT
  Age: 41 Year
  Sex: Female
  Weight: 55.33 kg

DRUGS (2)
  1. AIMOVIG [Suspect]
     Active Substance: ERENUMAB-AOOE
     Indication: PRODUCT USED FOR UNKNOWN INDICATION
     Dosage: 70 MILLIGRAM, QMO
     Route: 065
     Dates: start: 20191207
  2. IMITREX [Concomitant]
     Active Substance: SUMATRIPTAN SUCCINATE
     Dosage: 100 MILLIGRAM

REACTIONS (8)
  - Pruritus [Recovered/Resolved]
  - Chest discomfort [Not Recovered/Not Resolved]
  - Dyspnoea [Recovered/Resolved]
  - Migraine [Recovered/Resolved]
  - Throat tightness [Not Recovered/Not Resolved]
  - Malaise [Not Recovered/Not Resolved]
  - Fatigue [Not Recovered/Not Resolved]
  - Nasal congestion [Recovered/Resolved]

NARRATIVE: CASE EVENT DATE: 201912
